FAERS Safety Report 10206503 (Version 2)
Quarter: 2014Q2

REPORT INFORMATION
  Report Type: Spontaneous
  Country: US (occurrence: US)
  Receive Date: 20140530
  Receipt Date: 20140530
  Transmission Date: 20141212
  Serious: No
  Sender: FDA-Public Use
  Company Number: US-GLAXOSMITHKLINE-A0915383A

PATIENT
  Age: 36 Year
  Sex: Female
  Weight: 80 kg

DRUGS (6)
  1. FLOLAN [Suspect]
     Indication: PULMONARY ARTERIAL HYPERTENSION
     Dates: start: 20060412
  2. ARMOUR [Concomitant]
  3. LETAIRIS [Concomitant]
  4. COUMADIN [Concomitant]
  5. OXYGEN [Concomitant]
  6. ATIVAN [Concomitant]

REACTIONS (10)
  - Chest discomfort [Unknown]
  - Blood iron decreased [Unknown]
  - Device leakage [Recovered/Resolved]
  - Chest pain [Recovered/Resolved]
  - Dyspnoea [Recovered/Resolved]
  - Malaise [Unknown]
  - Medical device complication [Unknown]
  - Incorrect dose administered [Unknown]
  - Drug administration error [Unknown]
  - Erythema [Unknown]
